FAERS Safety Report 18620589 (Version 8)
Quarter: 2021Q2

REPORT INFORMATION
  Report Type: Report from Study
  Country: CA (occurrence: CA)
  Receive Date: 20201215
  Receipt Date: 20210517
  Transmission Date: 20210717
  Serious: Yes (Hospitalization, Other)
  Sender: FDA-Public Use
  Company Number: CA-TAKEDA-CA202030961

PATIENT
  Age: 85 Year
  Sex: Male

DRUGS (7)
  1. C1 INHIBITOR (HUMAN) [Suspect]
     Active Substance: HUMAN C1-ESTERASE INHIBITOR
     Dosage: 1000 MILLIGRAM, 1X/WEEK
     Route: 065
     Dates: start: 20181211
  2. C1 INHIBITOR (HUMAN) [Suspect]
     Active Substance: HUMAN C1-ESTERASE INHIBITOR
     Indication: HEREDITARY ANGIOEDEMA
     Dosage: 1000 MILLIGRAM, 1X/WEEK
     Route: 065
     Dates: start: 20181211
  3. C1 INHIBITOR (HUMAN) [Suspect]
     Active Substance: HUMAN C1-ESTERASE INHIBITOR
     Dosage: 1000 MILLIGRAM, 1X/WEEK
     Route: 065
     Dates: start: 20181211
  4. C1 INHIBITOR (HUMAN) [Suspect]
     Active Substance: HUMAN C1-ESTERASE INHIBITOR
     Indication: HEREDITARY ANGIOEDEMA
     Dosage: 1000 MILLIGRAM, 1X/WEEK
     Route: 065
     Dates: start: 20181211
  5. C1 INHIBITOR (HUMAN) [Suspect]
     Active Substance: HUMAN C1-ESTERASE INHIBITOR
     Indication: HEREDITARY ANGIOEDEMA
     Dosage: 1000 MILLIGRAM, 1X/WEEK
     Route: 065
     Dates: start: 20181211
  6. AURO VALACYCLOVIR [Concomitant]
     Indication: PRODUCT USED FOR UNKNOWN INDICATION
     Dosage: 500MG 2 TABLETS, 3 TIMES A DAY FOR 7 DAYS
     Route: 065
  7. C1 INHIBITOR (HUMAN) [Suspect]
     Active Substance: HUMAN C1-ESTERASE INHIBITOR
     Dosage: 1000 MILLIGRAM, 1X/WEEK
     Route: 065
     Dates: start: 20181211

REACTIONS (9)
  - Chest pain [Recovered/Resolved]
  - Aneurysm [Not Recovered/Not Resolved]
  - Vascular graft [Recovered/Resolved]
  - Inappropriate schedule of product administration [Unknown]
  - Blood pressure increased [Unknown]
  - Infusion related reaction [Unknown]
  - Herpes zoster [Recovered/Resolved]
  - Cardiac operation [Unknown]
  - Haemorrhage [Not Recovered/Not Resolved]

NARRATIVE: CASE EVENT DATE: 2020
